FAERS Safety Report 9844053 (Version 1)
Quarter: 2014Q1

REPORT INFORMATION
  Report Type: Spontaneous
  Country: US (occurrence: US)
  Receive Date: 20140127
  Receipt Date: 20140127
  Transmission Date: 20141002
  Serious: Yes (Other)
  Sender: FDA-Public Use
  Company Number: US-AMGEN-USASP2014004812

PATIENT
  Age: 65 Year
  Sex: Female
  Weight: 85.71 kg

DRUGS (12)
  1. ENBREL [Suspect]
     Indication: PRODUCT USED FOR UNKNOWN INDICATION
     Dosage: 50 MG, QWK
     Route: 058
  2. GLYBURIDE [Concomitant]
     Dosage: 1.25 MG, UNK
  3. METFORMIN [Concomitant]
     Dosage: 850 MG, UNK
  4. LIPITOR [Concomitant]
     Dosage: 10 MG, UNK
  5. COMBIGAN [Concomitant]
     Dosage: 0.2/0.5%
  6. AZOPT [Concomitant]
     Dosage: 1%, OP
  7. ASPIRIN [Concomitant]
     Dosage: 81 MG, UNK
  8. FISH OIL [Concomitant]
     Dosage: UNK
  9. VITAMIN C                          /00008001/ [Concomitant]
     Dosage: 500 MG, UNK
  10. CALCIUM +D                         /00944201/ [Concomitant]
     Dosage: UNK
  11. ZANTAC [Concomitant]
     Dosage: 75 UNK, UNK
  12. LOSARTAN POTASSIUM [Concomitant]
     Dosage: 25 MG, UNK

REACTIONS (2)
  - Respiratory tract infection [Unknown]
  - Injection site pain [Unknown]
